FAERS Safety Report 8914838 (Version 1)
Quarter: 2012Q4

REPORT INFORMATION
  Report Type: 
  Country: GB (occurrence: GB)
  Receive Date: 20121116
  Receipt Date: 20121116
  Transmission Date: 20130627
  Serious: Yes (Hospitalization)
  Sender: FDA-Public Use
  Company Number: GB-BAUSCH-BL-2012-001689

PATIENT
  Age: 26 Year
  Sex: Male

DRUGS (2)
  1. PREDNISOLONE [Suspect]
     Indication: HELICOBACTER INFECTION
  2. CLOBETASOL PROPIONATE [Suspect]
     Indication: HELICOBACTER INFECTION

REACTIONS (13)
  - Blood creatine increased [Unknown]
  - Excessive granulation tissue [Unknown]
  - Skin fibrosis [Unknown]
  - Synovitis [Unknown]
  - Arthralgia [Unknown]
  - Condition aggravated [Unknown]
  - C-reactive protein increased [Unknown]
  - Red blood cell sedimentation rate increased [Unknown]
  - Hepatic function abnormal [Unknown]
  - Skin ulcer [Unknown]
  - Staphylococcal infection [Unknown]
  - Enterobacter infection [Unknown]
  - Helicobacter infection [Recovered/Resolved]
